FAERS Safety Report 6309313-X (Version None)
Quarter: 2009Q3

REPORT INFORMATION
  Report Type: 
  Country: None (occurrence: None)
  Receive Date: 20090811
  Receipt Date: 20090508
  Transmission Date: 20100115
  Serious: No
  Sender: FDA-Public Use
  Company Number: 1000006156

PATIENT
  Age: 43 Year
  Sex: Female

DRUGS (11)
  1. SAVELLA [Suspect]
     Indication: FIBROMYALGIA
     Dosage: 12.5 MG (12.5 MG, 1 IN 1 D), ORAL
     Route: 048
     Dates: start: 20090505, end: 20090505
  2. SAVELLA [Suspect]
     Indication: FIBROMYALGIA
     Dosage: 25 MG (12.5 MG, 2 IN 1 D), ORAL
     Route: 048
     Dates: start: 20090506, end: 20090506
  3. LYRICA [Concomitant]
  4. ULTRAM [Concomitant]
  5. FIORICET [Concomitant]
  6. LOPRESSOR [Concomitant]
  7. NEXIUM [Concomitant]
  8. NAPROXEN [Concomitant]
  9. AMANTADINE HCL [Concomitant]
  10. ZANAFLEX [Concomitant]
  11. DEXAMETHASONE [Concomitant]

REACTIONS (2)
  - MUSCLE TWITCHING [None]
  - PAIN [None]
